FAERS Safety Report 10472726 (Version 1)
Quarter: 2014Q3

REPORT INFORMATION
  Report Type: Other
  Country: FR (occurrence: FR)
  Receive Date: 20140924
  Receipt Date: 20140924
  Transmission Date: 20150326
  Serious: Yes (Hospitalization)
  Sender: FDA-Public Use
  Company Number: FR-CUBIST PHARMACEUTICALS, INC.-2014CBST001284

PATIENT

DRUGS (7)
  1. CUBICIN [Suspect]
     Active Substance: DAPTOMYCIN
     Indication: OFF LABEL USE
     Dosage: UNK UNK, SINGLE
     Route: 042
     Dates: start: 20140808, end: 20140808
  2. GENTAMYCIN                         /00047101/ [Concomitant]
     Active Substance: GENTAMICIN
     Indication: ARTHRITIS BACTERIAL
     Dosage: UNK UNK, UNK
     Route: 065
     Dates: start: 20140810, end: 20140812
  3. VANCOMYCIN HYDROCHLORIDE. [Suspect]
     Active Substance: VANCOMYCIN HYDROCHLORIDE
     Indication: ARTHRITIS BACTERIAL
     Dosage: 1 G, SLOW IV
     Route: 042
     Dates: start: 20140730
  4. ZINFORO [Concomitant]
     Active Substance: CEFTAROLINE FOSAMIL
     Indication: ARTHRITIS BACTERIAL
     Dosage: UNK UNK, UNK
     Route: 065
     Dates: start: 20140809, end: 20140812
  5. TAZOCILLINE [Concomitant]
     Active Substance: PIPERACILLIN SODIUM\TAZOBACTAM SODIUM
     Indication: ARTHRITIS BACTERIAL
     Dosage: UNK UNK, UNK
     Route: 065
     Dates: start: 20140725, end: 20140730
  6. CUBICIN [Suspect]
     Active Substance: DAPTOMYCIN
     Indication: ARTHRITIS BACTERIAL
     Dosage: 650 MG, QD
     Route: 042
     Dates: start: 20140726, end: 20140730
  7. VANCOMYCIN HYDROCHLORIDE. [Suspect]
     Active Substance: VANCOMYCIN HYDROCHLORIDE
     Dosage: 2 G, QD
     Route: 042
     Dates: end: 20140808

REACTIONS (7)
  - Eyelid oedema [Recovering/Resolving]
  - Blood creatinine increased [Unknown]
  - Eosinophilia [Recovering/Resolving]
  - Drug reaction with eosinophilia and systemic symptoms [Recovering/Resolving]
  - Rash morbilliform [Recovering/Resolving]
  - Hypertension [Unknown]
  - Pyrexia [Not Recovered/Not Resolved]

NARRATIVE: CASE EVENT DATE: 201408
